FAERS Safety Report 14349400 (Version 3)
Quarter: 2018Q2

REPORT INFORMATION
  Report Type: Spontaneous
  Country: US (occurrence: US)
  Receive Date: 20180104
  Receipt Date: 20180412
  Transmission Date: 20180711
  Serious: Yes (Hospitalization)
  Sender: FDA-Public Use
  Company Number: US-BIOGEN-2017BI00503801

PATIENT
  Age: 13 Year
  Sex: Male

DRUGS (2)
  1. SPINRAZA [Suspect]
     Active Substance: NUSINERSEN
     Route: 037
     Dates: start: 20170103
  2. SPINRAZA [Suspect]
     Active Substance: NUSINERSEN
     Indication: SPINAL MUSCULAR ATROPHY
     Dosage: FIRST 3 LOADING DOSES EVERY 14 DAYS; 4TH ONCE AFTER 30 DAYS. MAINTENANCE DOSES: ONCE EVERY 4 MONTHS.
     Route: 037
     Dates: start: 20170828

REACTIONS (3)
  - Post procedural complication [Not Recovered/Not Resolved]
  - Asthenia [Not Recovered/Not Resolved]
  - Spinal muscular atrophy [Recovered/Resolved]

NARRATIVE: CASE EVENT DATE: 20171130
